FAERS Safety Report 10676016 (Version 2)
Quarter: 2015Q1

REPORT INFORMATION
  Report Type: Spontaneous
  Country: GB (occurrence: GB)
  Receive Date: 20141225
  Receipt Date: 20150123
  Transmission Date: 20150720
  Serious: Yes (Death, Hospitalization, Other)
  Sender: FDA-Public Use
  Company Number: GB-GILEAD-2014-0128709

PATIENT
  Age: 61 Year
  Sex: Male

DRUGS (2)
  1. METHYLPREDISOLONE [Concomitant]
     Active Substance: METHYLPREDNISOLONE
  2. IDELALISIB [Suspect]
     Active Substance: IDELALISIB
     Indication: CHRONIC LYMPHOCYTIC LEUKAEMIA
     Dosage: UNK
     Route: 065
     Dates: start: 20141030, end: 20141126

REACTIONS (2)
  - Disease progression [Fatal]
  - Drug ineffective [Unknown]

NARRATIVE: CASE EVENT DATE: 20141127
